FAERS Safety Report 20797173 (Version 1)
Quarter: 2022Q2

REPORT INFORMATION
  Report Type: Spontaneous
  Country: CA (occurrence: CA)
  Receive Date: 20220506
  Receipt Date: 20220506
  Transmission Date: 20220721
  Serious: Yes (Death, Life-Threatening, Other)
  Sender: FDA-Public Use
  Company Number: CA-NAPPMUNDI-GBR-2022-0097541

PATIENT
  Age: 23 Year
  Sex: Female
  Weight: 76 kg

DRUGS (6)
  1. HYDROMORPHONE HYDROCHLORIDE [Suspect]
     Active Substance: HYDROMORPHONE HYDROCHLORIDE
     Indication: Product used for unknown indication
     Dosage: UNK
     Route: 065
  2. DEXAMETHASONE [Suspect]
     Active Substance: DEXAMETHASONE
     Indication: Product used for unknown indication
     Dosage: 4 MILLIGRAM, DAILY
     Route: 048
  3. TRAMETINIB [Suspect]
     Active Substance: TRAMETINIB
     Indication: Glioma
     Dosage: 2 MILLIGRAM
     Route: 048
  4. TRAMETINIB [Suspect]
     Active Substance: TRAMETINIB
     Dosage: 2 MILLIGRAM
     Route: 048
  5. HALOPERIDOL [Concomitant]
     Active Substance: HALOPERIDOL
     Indication: Product used for unknown indication
     Dosage: UNK
     Route: 065
  6. PREGABALIN [Concomitant]
     Active Substance: PREGABALIN
     Indication: Product used for unknown indication
     Dosage: 50 MILLIGRAM, BID
     Route: 065

REACTIONS (8)
  - Serum ferritin increased [Fatal]
  - Brain stem glioma [Fatal]
  - Death [Fatal]
  - Dyspnoea [Fatal]
  - General physical health deterioration [Fatal]
  - Hepatotoxicity [Fatal]
  - Malignant neoplasm progression [Fatal]
  - Pneumonia [Fatal]
